FAERS Safety Report 8350076 (Version 5)
Quarter: 2012Q4

REPORT INFORMATION
  Report Type: Report from Study
  Country: FR (occurrence: FR)
  Receive Date: 20120124
  Receipt Date: 20120912
  Transmission Date: 20130627
  Serious: Yes (Hospitalization)
  Sender: FDA-Public Use
  Company Number: FR-BIOGENIDEC-2012BI001718

PATIENT
  Age: 44 Year
  Sex: Female
  Weight: 110 kg

DRUGS (4)
  1. TYSABRI [Suspect]
     Indication: MULTIPLE SCLEROSIS
     Route: 042
     Dates: start: 20090330, end: 20111205
  2. TYSABRI [Suspect]
     Indication: MULTIPLE SCLEROSIS
     Route: 042
     Dates: start: 20120222
  3. CERAZETTE [Concomitant]
     Indication: CONTRACEPTION
  4. CYMBALTA [Concomitant]

REACTIONS (1)
  - Thrombophlebitis septic [Recovered/Resolved]
